FAERS Safety Report 8247265-6 (Version None)
Quarter: 2012Q1

REPORT INFORMATION
  Report Type: 
  Country: None (occurrence: None)
  Receive Date: 20120316
  Receipt Date: 20091211
  Transmission Date: 20120608
  Serious: Yes (Other)
  Sender: FDA-Public Use
  Company Number: PHEH2009US17689

PATIENT
  Sex: Female
  Weight: 74.8 kg

DRUGS (1)
  1. TEKTURNA [Suspect]
     Dosage: 150 MG, BID
     Dates: start: 20091209

REACTIONS (2)
  - HYPERTENSION [None]
  - HEART RATE INCREASED [None]
